FAERS Safety Report 15206132 (Version 1)
Quarter: 2018Q3

REPORT INFORMATION
  Report Type: Spontaneous
  Country: CA (occurrence: CA)
  Receive Date: 20180727
  Receipt Date: 20180727
  Transmission Date: 20181010
  Serious: Yes (Other)
  Sender: FDA-Public Use
  Company Number: CA-CONCORDIA PHARMACEUTICALS INC.-GSH201807-002631

PATIENT
  Sex: Female
  Weight: 81 kg

DRUGS (17)
  1. ENBREL [Concomitant]
     Active Substance: ETANERCEPT
  2. LEFLUNOMIDE. [Concomitant]
     Active Substance: LEFLUNOMIDE
  3. SULFASALAZINE. [Concomitant]
     Active Substance: SULFASALAZINE
  4. FLOVENT [Concomitant]
     Active Substance: FLUTICASONE PROPIONATE
     Indication: ASTHMA
  5. PANTOPRAZOLE MAGNESIUM [Concomitant]
     Active Substance: PANTOPRAZOLE MAGNESIUM
  6. RITUXIMAB. [Concomitant]
     Active Substance: RITUXIMAB
     Dates: start: 2011, end: 2016
  7. PLAQUENIL [Suspect]
     Active Substance: HYDROXYCHLOROQUINE SULFATE
     Route: 065
  8. VITAMIN B12 (VITAMIN B12 NOS) [Concomitant]
  9. KEVZARA [Concomitant]
     Active Substance: SARILUMAB
     Dates: start: 201705, end: 201805
  10. HUMIRA [Concomitant]
     Active Substance: ADALIMUMAB
  11. VITAMIN B6 [Concomitant]
     Active Substance: PYRIDOXINE HYDROCHLORIDE
  12. METOCLOPRAMIDE HCL [Concomitant]
     Active Substance: METOCLOPRAMIDE HYDROCHLORIDE
  13. ORENCIA [Concomitant]
     Active Substance: ABATACEPT
     Dates: start: 2016, end: 201705
  14. ZOPICLONE [Concomitant]
     Active Substance: ZOPICLONE
  15. METHOTREXATE. [Concomitant]
     Active Substance: METHOTREXATE
  16. CALCIUM [Concomitant]
     Active Substance: CALCIUM
  17. VITAMIN D [Concomitant]
     Active Substance: CHOLECALCIFEROL

REACTIONS (6)
  - Peripheral swelling [Unknown]
  - Asthenia [Unknown]
  - Tenderness [Unknown]
  - Arthritis [Unknown]
  - Rheumatoid arthritis [Unknown]
  - Condition aggravated [Unknown]
